FAERS Safety Report 8112050-2 (Version None)
Quarter: 2012Q1

REPORT INFORMATION
  Report Type: 
  Country: None (occurrence: None)
  Receive Date: 20120203
  Receipt Date: 20120113
  Transmission Date: 20120608
  Serious: Yes (Hospitalization, Other)
  Sender: FDA-Public Use
  Company Number: US-ELI_LILLY_AND_COMPANY-US201107001434

PATIENT
  Sex: Female
  Weight: 39 kg

DRUGS (15)
  1. FORTEO [Suspect]
     Indication: OSTEOPOROSIS
     Dosage: 20 UG, QD
     Route: 058
     Dates: start: 20110620
  2. FORTEO [Suspect]
     Dosage: 20 UG, QD
     Route: 058
  3. FIORICET [Concomitant]
  4. SUMATRIPTAN [Concomitant]
  5. VITAMIN D [Concomitant]
  6. FORTEO [Suspect]
     Dosage: 20 UG, QD
     Route: 058
  7. DEPAKOTE [Concomitant]
  8. PERCOCET [Concomitant]
  9. FORTEO [Suspect]
     Dosage: 20 UG, QD
     Route: 058
  10. NEURONTIN [Concomitant]
     Indication: HEADACHE
  11. FORTEO [Suspect]
     Dosage: 20 UG, QD
     Route: 058
  12. FORTEO [Suspect]
     Dosage: 20 UG, QD
     Route: 058
  13. LORAZEPAM [Concomitant]
  14. M.V.I. [Concomitant]
  15. CALCIUM [Concomitant]

REACTIONS (18)
  - OVERDOSE [None]
  - ASTHENIA [None]
  - INJECTION SITE HAEMATOMA [None]
  - FATIGUE [None]
  - ANAEMIA [None]
  - NASOPHARYNGITIS [None]
  - PNEUMONIA [None]
  - LIMB INJURY [None]
  - CONTUSION [None]
  - NERVOUS SYSTEM DISORDER [None]
  - BIPOLAR DISORDER [None]
  - FEELING ABNORMAL [None]
  - HYPOKINESIA [None]
  - INTESTINAL OBSTRUCTION [None]
  - BILE DUCT OBSTRUCTION [None]
  - MALAISE [None]
  - HEADACHE [None]
  - CONSTIPATION [None]
